FAERS Safety Report 7027679-2 (Version None)
Quarter: 2010Q4

REPORT INFORMATION
  Report Type: 
  Country: None (occurrence: None)
  Receive Date: 20101004
  Receipt Date: 20100927
  Transmission Date: 20110411
  Serious: Yes (Other)
  Sender: FDA-Public Use
  Company Number: US-AMGEN-KDL427374

PATIENT
  Sex: Male
  Weight: 77.2 kg

DRUGS (3)
  1. ENBREL [Suspect]
     Indication: PSORIASIS
     Route: 058
     Dates: start: 20100712, end: 20100807
  2. ZYRTEC [Concomitant]
     Route: 048
  3. MULTI-VITAMINS [Concomitant]
     Route: 048

REACTIONS (5)
  - ASTHENIA [None]
  - CHEST DISCOMFORT [None]
  - FATIGUE [None]
  - OTITIS EXTERNA [None]
  - PAIN [None]
